FAERS Safety Report 20134436 (Version 2)
Quarter: 2022Q1

REPORT INFORMATION
  Report Type: Report from Study
  Country: US (occurrence: US)
  Receive Date: 20211201
  Receipt Date: 20220113
  Transmission Date: 20220424
  Serious: Yes (Death, Hospitalization)
  Sender: FDA-Public Use
  Company Number: US-NOVARTISPH-NVSC2021US273833

PATIENT
  Age: 82 Year
  Sex: Male

DRUGS (1)
  1. TABRECTA [Suspect]
     Active Substance: CAPMATINIB
     Indication: Non-small cell lung cancer metastatic
     Dosage: 400 MG, BID
     Route: 048
     Dates: start: 20210429

REACTIONS (7)
  - Death [Fatal]
  - Unevaluable event [Unknown]
  - Wheezing [Unknown]
  - Urinary tract infection [Unknown]
  - Sepsis [Unknown]
  - Dyspnoea [Unknown]
  - Cough [Unknown]

NARRATIVE: CASE EVENT DATE: 20211114
